FAERS Safety Report 9081988 (Version 1)
Quarter: 2013Q1

REPORT INFORMATION
  Report Type: Spontaneous
  Country: US (occurrence: US)
  Receive Date: 20130131
  Receipt Date: 20130131
  Transmission Date: 20140127
  Serious: No
  Sender: FDA-Public Use
  Company Number: US-JNJFOC-20130111649

PATIENT
  Sex: Male
  Weight: 102.06 kg

DRUGS (9)
  1. DURAGESIC [Suspect]
     Indication: BONE DISORDER
     Route: 062
     Dates: start: 2005
  2. DURAGESIC [Suspect]
     Indication: BONE DISORDER
     Route: 062
  3. DURAGESIC [Suspect]
     Indication: BONE DISORDER
     Route: 062
  4. UNSPECIFIED FENTANYL TRANSDERMAL SYSTEM [Suspect]
     Indication: BONE DISORDER
     Route: 062
     Dates: start: 2009, end: 2009
  5. DURAGESIC [Suspect]
     Indication: BONE DISORDER
     Route: 062
     Dates: start: 2009, end: 2011
  6. DURAGESIC [Suspect]
     Indication: BONE DISORDER
     Route: 062
     Dates: start: 2011
  7. SOMA [Concomitant]
     Route: 065
  8. LYRICA [Concomitant]
     Route: 065
  9. UNKNOWN MEDICATION [Concomitant]
     Route: 065

REACTIONS (7)
  - Pain [Recovered/Resolved]
  - Product quality issue [Unknown]
  - Muscle spasms [Recovered/Resolved]
  - Wrong technique in drug usage process [Unknown]
  - Headache [Recovered/Resolved]
  - Memory impairment [Recovered/Resolved]
  - Breakthrough pain [Recovered/Resolved]
